FAERS Safety Report 16915209 (Version 1)
Quarter: 2019Q4

REPORT INFORMATION
  Report Type: Spontaneous
  Country: US (occurrence: US)
  Receive Date: 20191012
  Receipt Date: 20191012
  Transmission Date: 20200122
  Serious: No
  Sender: FDA-Public Use
  Company Number: None

PATIENT
  Age: 51 Year
  Sex: Female
  Weight: 58.5 kg

DRUGS (1)
  1. OTEZLA [Suspect]
     Active Substance: APREMILAST
     Indication: PSORIASIS
     Route: 048
     Dates: start: 20190829, end: 20191007

REACTIONS (12)
  - Rhinorrhoea [None]
  - Pulmonary congestion [None]
  - Tension headache [None]
  - Diarrhoea [None]
  - Depressed mood [None]
  - Depression [None]
  - Skin plaque [None]
  - Sneezing [None]
  - Pruritus [None]
  - Nausea [None]
  - Pain [None]
  - Treatment failure [None]

NARRATIVE: CASE EVENT DATE: 20191001
